FAERS Safety Report 19028369 (Version 1)
Quarter: 2021Q1

REPORT INFORMATION
  Report Type: Spontaneous
  Country: RO (occurrence: RO)
  Receive Date: 20210319
  Receipt Date: 20210319
  Transmission Date: 20210420
  Serious: Yes (Other)
  Sender: FDA-Public Use
  Company Number: RO-ROCHE-2790625

PATIENT
  Age: 62 Year
  Sex: Female

DRUGS (2)
  1. BEVACIZUMAB. [Suspect]
     Active Substance: BEVACIZUMAB
     Indication: BREAST CANCER
     Route: 065
     Dates: start: 201910
  2. PACLITAXEL. [Suspect]
     Active Substance: PACLITAXEL
     Indication: BREAST CANCER
     Route: 065
     Dates: start: 201910

REACTIONS (5)
  - Pleural effusion [Unknown]
  - Alopecia [Unknown]
  - Peripheral sensory neuropathy [Unknown]
  - Arthralgia [Unknown]
  - Neutropenia [Unknown]
